FAERS Safety Report 20175605 (Version 1)
Quarter: 2021Q4

REPORT INFORMATION
  Report Type: Spontaneous
  Country: FR (occurrence: FR)
  Receive Date: 20211213
  Receipt Date: 20211213
  Transmission Date: 20220304
  Serious: Yes (Death, Hospitalization, Disabling)
  Sender: FDA-Public Use
  Company Number: FR-MYLANLABS-2021M1091203

PATIENT
  Age: 55 Year
  Sex: Male

DRUGS (4)
  1. PREDNISONE [Suspect]
     Active Substance: PREDNISONE
     Indication: Immunosuppressant drug therapy
     Dosage: 1 MILLIGRAM/KILOGRAM
     Route: 065
  2. PREDNISONE [Suspect]
     Active Substance: PREDNISONE
     Indication: Henoch-Schonlein purpura
  3. FLUCYTOSINE [Suspect]
     Active Substance: FLUCYTOSINE
     Indication: Disseminated aspergillosis
     Dosage: 100 MILLIGRAM/KILOGRAM, QD
     Route: 065
  4. AMPHOTERICIN B [Suspect]
     Active Substance: AMPHOTERICIN B
     Indication: Disseminated aspergillosis
     Dosage: 5 MILLIGRAM/KILOGRAM, QD
     Route: 065

REACTIONS (8)
  - Aspergillus infection [Fatal]
  - Disseminated aspergillosis [Fatal]
  - Fungal endocarditis [Fatal]
  - Atrial fibrillation [Fatal]
  - Neurological decompensation [Fatal]
  - Vital functions abnormal [Fatal]
  - Drug ineffective [Fatal]
  - Blindness [Not Recovered/Not Resolved]
